FAERS Safety Report 9908382 (Version 1)
Quarter: 2014Q1

REPORT INFORMATION
  Report Type: Spontaneous
  Country: DE (occurrence: DE)
  Receive Date: 20140219
  Receipt Date: 20140219
  Transmission Date: 20141002
  Serious: Yes (Hospitalization)
  Sender: FDA-Public Use
  Company Number: DE-JNJFOC-20140206810

PATIENT
  Age: 15 Year
  Sex: Female
  Weight: 52 kg

DRUGS (6)
  1. CONCERTA [Suspect]
     Indication: DISTURBANCE IN ATTENTION
     Route: 048
     Dates: end: 2014
  2. CONCERTA [Suspect]
     Indication: DISTURBANCE IN ATTENTION
     Route: 048
     Dates: start: 2011
  3. MEDIKINET [Suspect]
     Indication: DISTURBANCE IN ATTENTION
     Route: 048
     Dates: end: 20131210
  4. OMEPRAZOLE [Concomitant]
     Indication: GASTROOESOPHAGEAL REFLUX DISEASE
     Route: 048
     Dates: start: 20131026, end: 20131107
  5. MCP AL [Concomitant]
     Indication: NAUSEA
     Route: 065
     Dates: start: 20131108, end: 20131211
  6. NOVALGIN [Concomitant]
     Indication: ABDOMINAL PAIN UPPER
     Route: 065
     Dates: start: 20131214, end: 20140114

REACTIONS (3)
  - Amylase increased [Recovered/Resolved]
  - Gastrointestinal pain [Recovered/Resolved]
  - Lipase increased [Recovered/Resolved]
